FAERS Safety Report 6025837-7 (Version None)
Quarter: 2008Q4

REPORT INFORMATION
  Report Type: 
  Country: None (occurrence: None)
  Receive Date: 20081229
  Receipt Date: 20081212
  Transmission Date: 20090506
  Serious: Yes (Hospitalization, Other)
  Sender: FDA-Public Use
  Company Number: US-ROSEMONTLT-UKRP0002716-12-DEC-2008

PATIENT
  Age: 34 Year
  Sex: Female

DRUGS (1)
  1. TAMOXIFEN CITRATE [Suspect]
     Indication: BREAST CANCER

REACTIONS (6)
  - ABDOMINAL MASS [None]
  - LEIOMYOMA [None]
  - PAIN [None]
  - PERITONEAL NEOPLASM [None]
  - REFUSAL OF TREATMENT BY PATIENT [None]
  - SMOOTH MUSCLE CELL NEOPLASM [None]
